FAERS Safety Report 5010045-9 (Version None)
Quarter: 2006Q2

REPORT INFORMATION
  Report Type: 
  Country: None (occurrence: None)
  Receive Date: 20060404
  Receipt Date: 20051114
  Transmission Date: 20061013
  Serious: No
  Sender: FDA-Public Use
  Company Number: US200511000979

PATIENT
  Age: 25 Year
  Sex: Female

DRUGS (2)
  1. CYMBALTA [Suspect]
     Dosage: 60 MG, DAILY (1/D), ORAL
     Route: 048
     Dates: start: 20051031
  2. MEDROXYPROGESTERONE ACETAET (MEDROXYPROGESTERONE ACETATE) [Concomitant]

REACTIONS (1)
  - MENSTRUATION IRREGULAR [None]
